FAERS Safety Report 6223243-3 (Version None)
Quarter: 2009Q2

REPORT INFORMATION
  Report Type: 
  Country: None (occurrence: None)
  Receive Date: 20090611
  Receipt Date: 20090602
  Transmission Date: 20091009
  Serious: Yes (Hospitalization)
  Sender: FDA-Public Use
  Company Number: CZ-ABBOTT-09P-217-0570675-00

PATIENT
  Sex: Female
  Weight: 70 kg

DRUGS (3)
  1. SEVOFLURANE [Suspect]
     Indication: BREAST OPERATION
     Dosage: 25 MINUTES
     Route: 055
     Dates: start: 20090421, end: 20090421
  2. PROPOFOL FRESENIUS [Concomitant]
     Indication: DRUG USE FOR UNKNOWN INDICATION
  3. PLASMALYTE SOLUTION [Concomitant]
     Indication: DRUG USE FOR UNKNOWN INDICATION

REACTIONS (8)
  - C-REACTIVE PROTEIN INCREASED [None]
  - COAGULOPATHY [None]
  - HAEMODYNAMIC INSTABILITY [None]
  - HYPOTENSION [None]
  - LIVER DISORDER [None]
  - PROCALCITONIN INCREASED [None]
  - TACHYCARDIA [None]
  - THROMBOCYTOPENIA [None]
